FAERS Safety Report 25070384 (Version 1)
Quarter: 2025Q1

REPORT INFORMATION
  Report Type: Spontaneous
  Country: GB (occurrence: GB)
  Receive Date: 20250312
  Receipt Date: 20250312
  Transmission Date: 20250409
  Serious: Yes (Life-Threatening, Hospitalization)
  Sender: TEVA
  Company Number: GB-2025-MANX-SPN-006

PATIENT
  Age: 27 Year
  Sex: Male

DRUGS (1)
  1. DESMOPRESSIN [Suspect]
     Active Substance: DESMOPRESSIN
     Indication: Diabetes insipidus
     Dosage: 1 TABLET TWICE A DAY
     Route: 065
     Dates: start: 20250220, end: 20250224

REACTIONS (7)
  - Chills [Unknown]
  - Headache [Unknown]
  - Feeling cold [Unknown]
  - Abdominal pain upper [Unknown]
  - Malaise [Unknown]
  - Dehydration [Unknown]
  - Drug ineffective [Unknown]
